FAERS Safety Report 4928218-X (Version None)
Quarter: 2006Q1

REPORT INFORMATION
  Report Type: 
  Country: None (occurrence: None)
  Receive Date: 20060223
  Receipt Date: 20060209
  Transmission Date: 20060701
  Serious: Yes (Hospitalization, Disabling, Other)
  Sender: FDA-Public Use
  Company Number: 2005JP001846

PATIENT
  Age: 44 Year
  Sex: Male
  Weight: 60 kg

DRUGS (19)
  1. FUNGUARD                                         (MICAFUNGIN) [Suspect]
     Indication: PYREXIA
     Dosage: 150 MG, UID/QD, IV DRIP
     Route: 041
     Dates: start: 20050513, end: 20050515
  2. TARGOCID [Suspect]
     Indication: PYREXIA
     Dosage: 200 MG, BID, IV DRIP, 400 MG, IUD/QD, IV DRIP
     Route: 041
     Dates: start: 20050502, end: 20050506
  3. TARGOCID [Suspect]
     Indication: PYREXIA
     Dosage: 200 MG, BID, IV DRIP, 400 MG, IUD/QD, IV DRIP
     Route: 041
     Dates: start: 20050511, end: 20050513
  4. VANCOMYCIN ^DAKOTA PHARM^ (VACOMYCIN HYDROCHLORIDE) [Suspect]
     Indication: PYREXIA
     Dosage: 1 G, BID, IV DRIP
     Route: 041
     Dates: start: 20050513, end: 20050515
  5. MEROPEN                           (MEROPENEM) INJECTION [Suspect]
     Indication: PYREXIA
     Dosage: 0.5 G, BID, IV DRIP, 0.5 G, BID, IV DRIP
     Route: 041
     Dates: start: 20050502, end: 20050506
  6. MEROPEN                           (MEROPENEM) INJECTION [Suspect]
     Indication: PYREXIA
     Dosage: 0.5 G, BID, IV DRIP, 0.5 G, BID, IV DRIP
     Route: 041
     Dates: start: 20050511, end: 20050513
  7. FLUMARIN          (FLOMOXEF SODIUM) [Concomitant]
  8. EXACIN              (ISEPAMICIN SULFATE) [Concomitant]
  9. CIPROXAN (CIPROFLOXACIN HYDROCHLORIDE) INJECTION [Concomitant]
  10. CEFAMEZIN (CEFAZOLIN) INJECTION [Concomitant]
  11. CALONAL TABLET [Concomitant]
  12. FLOMOX (CEFCAPENE PIVOXIL HYDROCHLORIDE) TABLET [Concomitant]
  13. LOXONIN (LOXOPROFEN SODIUM) TABLET [Concomitant]
  14. MUCOSTA (REBAMIPIDE) TABLET) [Concomitant]
  15. TATHION (GLUTATHIONE) TABLET [Concomitant]
  16. SOSEGON (PENTAZOCINE) TABLET [Concomitant]
  17. RABEPRAZOLE SODIUM [Concomitant]
  18. BIPFERMIN R (STREPTOCOCCUS FAECALIS) [Concomitant]
  19. PROHEPARUM (CYSTEINE, LIVER HYDROLYSATE, INOSITOL, CHOLINE BITARTRATE) [Concomitant]

REACTIONS (6)
  - DISSEMINATED INTRAVASCULAR COAGULATION [None]
  - INTERSTITIAL LUNG DISEASE [None]
  - LIVER DISORDER [None]
  - LYMPHOCYTE STIMULATION TEST POSITIVE [None]
  - PLEURAL EFFUSION [None]
  - PULMONARY OEDEMA [None]
